FAERS Safety Report 4299502-0 (Version None)
Quarter: 2004Q1

REPORT INFORMATION
  Report Type: 
  Country: None (occurrence: None)
  Receive Date: 20040217
  Receipt Date: 20040210
  Transmission Date: 20041129
  Serious: Yes (Other)
  Sender: FDA-Public Use
  Company Number: 200314257BCC

PATIENT
  Age: 69 Year
  Sex: Male
  Weight: 95.2554 kg

DRUGS (8)
  1. ASPIRIN [Suspect]
     Indication: CEREBROVASCULAR ACCIDENT PROPHYLAXIS
     Dosage: SEE IMAGE ORAL
     Route: 048
     Dates: start: 20030901, end: 20031130
  2. ASPIRIN [Suspect]
     Indication: MYOCARDIAL INFARCTION
     Dosage: SEE IMAGE ORAL
     Route: 048
     Dates: start: 20030901, end: 20031130
  3. ASPIRIN [Suspect]
     Indication: PROPHYLAXIS
     Dosage: SEE IMAGE ORAL
     Route: 048
     Dates: start: 20030901, end: 20031130
  4. ASPIRIN [Suspect]
     Indication: CEREBROVASCULAR ACCIDENT PROPHYLAXIS
     Dosage: SEE IMAGE ORAL
     Route: 048
  5. ASPIRIN [Suspect]
     Indication: MYOCARDIAL INFARCTION
     Dosage: SEE IMAGE ORAL
     Route: 048
  6. ASPIRIN [Suspect]
     Indication: PROPHYLAXIS
     Dosage: SEE IMAGE ORAL
     Route: 048
  7. FLOMAX MR ^YAMANOUCHI^ [Concomitant]
  8. VITAMINS NOS [Concomitant]

REACTIONS (5)
  - CONTUSION [None]
  - LEUKOPENIA [None]
  - MEAN PLATELET VOLUME DECREASED [None]
  - PLATELET COUNT DECREASED [None]
  - RED BLOOD CELL COUNT DECREASED [None]
